FAERS Safety Report 15334889 (Version 2)
Quarter: 2018Q3

REPORT INFORMATION
  Report Type: Spontaneous
  Country: US (occurrence: US)
  Receive Date: 20180830
  Receipt Date: 20180904
  Transmission Date: 20181010
  Serious: No
  Sender: FDA-Public Use
  Company Number: US-IPSEN BIOPHARMACEUTICALS, INC.-2018-12675

PATIENT
  Age: 71 Year
  Sex: Female

DRUGS (9)
  1. SOMATULINE [Suspect]
     Active Substance: LANREOTIDE ACETATE
     Indication: PRODUCT USED FOR UNKNOWN INDICATION
     Dosage: 60 MG
     Route: 065
     Dates: start: 201806
  2. TOPROL XL [Concomitant]
     Active Substance: METOPROLOL SUCCINATE
  3. ACYCLOVIR. [Concomitant]
     Active Substance: ACYCLOVIR
  4. XERMELO [Suspect]
     Active Substance: TELOTRISTAT ETHYL
     Indication: BENIGN NEOPLASM
     Route: 048
     Dates: start: 20180731
  5. RESTORIL [Concomitant]
     Active Substance: TEMAZEPAM
  6. AMBIEN [Concomitant]
     Active Substance: ZOLPIDEM TARTRATE
  7. NEURONTIN [Concomitant]
     Active Substance: GABAPENTIN
  8. MOTRIN IB [Concomitant]
     Active Substance: IBUPROFEN
  9. XERMELO [Suspect]
     Active Substance: TELOTRISTAT ETHYL
     Indication: CARCINOID SYNDROME

REACTIONS (3)
  - Flushing [Recovering/Resolving]
  - Dysphonia [Unknown]
  - Dysphagia [Unknown]

NARRATIVE: CASE EVENT DATE: 201808
